FAERS Safety Report 7680010-1 (Version None)
Quarter: 2011Q3

REPORT INFORMATION
  Report Type: 
  Country: None (occurrence: None)
  Receive Date: 20110812
  Receipt Date: 20110809
  Transmission Date: 20111222
  Serious: Yes (Life-Threatening)
  Sender: FDA-Public Use
  Company Number: JP-BRACCO-005018

PATIENT
  Sex: Male
  Weight: 42 kg

DRUGS (6)
  1. COUMADIN [Concomitant]
     Indication: PRODUCT USED FOR UNKNOWN INDICATION
  2. CIBENOL [Concomitant]
     Indication: PRODUCT USED FOR UNKNOWN INDICATION
  3. DIOVAN [Concomitant]
     Indication: PRODUCT USED FOR UNKNOWN INDICATION
  4. LANSOPRAZOLE [Concomitant]
     Indication: PRODUCT USED FOR UNKNOWN INDICATION
  5. IOPAMIDOL [Suspect]
     Indication: GASTRIC CANCER
     Dosage: 2 ML/SEC
     Route: 042
     Dates: start: 20110705, end: 20110705
  6. IOPAMIDOL [Suspect]
     Indication: COMPUTERISED TOMOGRAM
     Dosage: 2 ML/SEC
     Route: 042
     Dates: start: 20110705, end: 20110705

REACTIONS (1)
  - ANAPHYLACTOID REACTION [None]
